FAERS Safety Report 6154617-7 (Version None)
Quarter: 2009Q2

REPORT INFORMATION
  Report Type: 
  Country: None (occurrence: None)
  Receive Date: 20090414
  Receipt Date: 20090406
  Transmission Date: 20091009
  Serious: Yes (Other)
  Sender: FDA-Public Use
  Company Number: US-ELI_LILLY_AND_COMPANY-US200805002908

PATIENT
  Sex: Female
  Weight: 86.168 kg

DRUGS (11)
  1. BYETTA [Suspect]
     Indication: TYPE 2 DIABETES MELLITUS
     Dosage: 5 UG, 2/D
     Route: 058
     Dates: start: 20070901, end: 20071001
  2. BYETTA [Suspect]
     Dosage: 10 UG, 2/D
     Route: 058
     Dates: start: 20071001, end: 20080401
  3. BYETTA [Suspect]
     Dosage: 5 UG, 2/D
     Route: 058
     Dates: start: 20080501
  4. PROTONIX [Concomitant]
     Indication: REFLUX OESOPHAGITIS
     Dosage: 40 MG, DAILY (1/D)
     Route: 048
     Dates: start: 20080421
  5. DICLOFENAC [Concomitant]
     Indication: ARTHRITIS
     Dosage: 50 MG, DAILY (1/D)
     Dates: start: 20080115, end: 20080423
  6. MAXALT-MLT [Concomitant]
     Indication: MIGRAINE
     Dosage: 1 D/F, AS NEEDED
     Route: 048
     Dates: start: 20071002
  7. CLONAZEPAM [Concomitant]
     Dosage: UNK, AS NEEDED
     Dates: start: 20070312
  8. WELLBUTRIN [Concomitant]
     Indication: DEPRESSION
     Dosage: 150 UNK, 2/D
     Route: 048
     Dates: start: 20061114
  9. NSAID'S [Concomitant]
  10. STATIN                             /00084401/ [Concomitant]
  11. PROZAC [Concomitant]
     Dosage: 40 MG, DAILY (1/D)
     Route: 048

REACTIONS (5)
  - BLOOD GLUCOSE INCREASED [None]
  - BLOOD TRIGLYCERIDES INCREASED [None]
  - HEPATIC STEATOSIS [None]
  - PANCREATITIS [None]
  - WEIGHT DECREASED [None]
